FAERS Safety Report 20380902 (Version 2)
Quarter: 2022Q1

REPORT INFORMATION
  Report Type: Spontaneous
  Country: US (occurrence: US)
  Receive Date: 20220127
  Receipt Date: 20220211
  Transmission Date: 20220424
  Serious: Yes (Death)
  Sender: FDA-Public Use
  Company Number: US-GW PHARMA-202201USGW00261

PATIENT

DRUGS (2)
  1. EPIDIOLEX [Suspect]
     Active Substance: CANNABIDIOL
     Indication: Epilepsy
     Dosage: 18 MG/KG (140 MILLIGRAM, BID) FOR ONE WEEK
     Route: 048
     Dates: start: 202110
  2. EPIDIOLEX [Suspect]
     Active Substance: CANNABIDIOL
     Dosage: 21 MG/KG (160 MILLIGRAM, BID)
     Route: 048

REACTIONS (1)
  - Death [Fatal]

NARRATIVE: CASE EVENT DATE: 20211209
